FAERS Safety Report 7537541-4 (Version None)
Quarter: 2011Q2

REPORT INFORMATION
  Report Type: 
  Country: None (occurrence: None)
  Receive Date: 20110609
  Receipt Date: 20070330
  Transmission Date: 20111010
  Serious: Yes (Other)
  Sender: FDA-Public Use
  Company Number: PHMT2007CA00577

PATIENT
  Sex: Female
  Weight: 68 kg

DRUGS (7)
  1. LUVOX [Concomitant]
  2. DIDROCAL [Concomitant]
  3. CRESTOR [Concomitant]
  4. DIOVAN [Suspect]
     Indication: HYPERTENSION
     Dosage: 80 MG, UNK
     Route: 048
     Dates: start: 20050107
  5. METFORMIN HYDROCHLORIDE [Concomitant]
  6. ASPIRIN [Concomitant]
     Dosage: ECASA 81 MG
  7. PANTOPRAZOLE SODIUM [Concomitant]

REACTIONS (2)
  - CONSTIPATION [None]
  - HAEMORRHAGE [None]
